FAERS Safety Report 15736481 (Version 1)
Quarter: 2018Q4

REPORT INFORMATION
  Report Type: Spontaneous
  Country: US (occurrence: US)
  Receive Date: 20181218
  Receipt Date: 20181218
  Transmission Date: 20190205
  Serious: Yes (Other)
  Sender: FDA-Public Use
  Company Number: US-NOVOPROD-637807

PATIENT
  Sex: Female

DRUGS (1)
  1. GLUCAGEN HYPOKIT [Suspect]
     Active Substance: GLUCAGON HYDROCHLORIDE
     Indication: BLOOD GLUCOSE DECREASED
     Dosage: UNK UNK, SINGLE
     Route: 030

REACTIONS (2)
  - Cerebrovascular accident [Unknown]
  - Exposure during pregnancy [Not Recovered/Not Resolved]
